FAERS Safety Report 11076483 (Version 1)
Quarter: 2015Q2

REPORT INFORMATION
  Report Type: Spontaneous
  Country: US (occurrence: US)
  Receive Date: 20150429
  Receipt Date: 20150429
  Transmission Date: 20150821
  Serious: Yes (Other)
  Sender: FDA-Public Use
  Company Number: US-PFIZER INC-2015137483

PATIENT
  Age: 38 Year
  Sex: Female
  Weight: 49.89 kg

DRUGS (7)
  1. LYRICA [Suspect]
     Active Substance: PREGABALIN
     Dosage: 150 MG, 2X/DAY
     Route: 048
  2. MOBIC [Concomitant]
     Active Substance: MELOXICAM
     Dosage: UNK
  3. OMEPRAZOLE. [Concomitant]
     Active Substance: OMEPRAZOLE
     Dosage: UNK
  4. EFFEXOR XR [Concomitant]
     Active Substance: VENLAFAXINE HYDROCHLORIDE
     Dosage: 150 MG, 1X/DAY (QD)
  5. ASA [Concomitant]
     Active Substance: ASPIRIN
     Dosage: 81 MG, 1X/DAY (QD)
  6. GABAPENTIN. [Concomitant]
     Active Substance: GABAPENTIN
  7. VICODIN [Concomitant]
     Active Substance: ACETAMINOPHEN\HYDROCODONE BITARTRATE
     Dosage: UNK, AS NEEDED (PRN)

REACTIONS (19)
  - Abscess rupture [Unknown]
  - Dysphagia [Unknown]
  - Paraesthesia [Not Recovered/Not Resolved]
  - Generalised anxiety disorder [Not Recovered/Not Resolved]
  - Cerebrovascular accident [Not Recovered/Not Resolved]
  - Depression [Unknown]
  - Brain neoplasm [Unknown]
  - Hypoaesthesia [Unknown]
  - Radiculopathy [Unknown]
  - Cerebrovascular insufficiency [Not Recovered/Not Resolved]
  - Neck pain [Recovered/Resolved]
  - Pain of skin [Unknown]
  - Central nervous system lesion [Unknown]
  - Lung abscess [Unknown]
  - Cervical radiculopathy [Not Recovered/Not Resolved]
  - Musculoskeletal chest pain [Unknown]
  - Hyperhidrosis [Unknown]
  - Muscular weakness [Not Recovered/Not Resolved]
  - Pain in extremity [Not Recovered/Not Resolved]

NARRATIVE: CASE EVENT DATE: 20130815
